FAERS Safety Report 11859373 (Version 2)
Quarter: 2017Q3

REPORT INFORMATION
  Report Type: Report from Study
  Country: DE (occurrence: DE)
  Receive Date: 20151221
  Receipt Date: 20170828
  Transmission Date: 20171127
  Serious: Yes (Death, Life-Threatening, Hospitalization, Other)
  Sender: FDA-Public Use
  Company Number: DE-GILEAD-2015-0178705

PATIENT
  Age: 72 Year
  Sex: Male
  Weight: 80.3 kg

DRUGS (3)
  1. OBINUTUZUMAB. [Suspect]
     Active Substance: OBINUTUZUMAB
     Indication: CHRONIC LYMPHOCYTIC LEUKAEMIA
     Dosage: 1000 MG, UNK
     Route: 042
     Dates: start: 20150729, end: 20150924
  2. IDELALISIB [Suspect]
     Active Substance: IDELALISIB
     Indication: CHRONIC LYMPHOCYTIC LEUKAEMIA
     Dosage: 150 MG, UNK
     Route: 065
     Dates: start: 20150814, end: 20151022
  3. BENDAMUSTINE [Suspect]
     Active Substance: BENDAMUSTINE
     Indication: CHRONIC LYMPHOCYTIC LEUKAEMIA
     Dosage: 142.5 MG, UNK
     Route: 042
     Dates: start: 20150709, end: 20150710

REACTIONS (5)
  - Brain hypoxia [Fatal]
  - Escherichia sepsis [Fatal]
  - Enterocolitis [Fatal]
  - Pneumonitis [Recovered/Resolved with Sequelae]
  - Dyspnoea [Recovered/Resolved]

NARRATIVE: CASE EVENT DATE: 20151016
